FAERS Safety Report 6380926-2 (Version None)
Quarter: 2009Q3

REPORT INFORMATION
  Report Type: 
  Country: None (occurrence: None)
  Receive Date: 20090925
  Receipt Date: 20090925
  Transmission Date: 20100115
  Serious: Yes (Death)
  Sender: FDA-Public Use
  Company Number: None

PATIENT
  Sex: Female

DRUGS (10)
  1. REVLIMID [Suspect]
     Indication: MULTIPLE MYELOMA
     Dosage: 10MG DAILY ORALLY
     Route: 048
     Dates: start: 20090212, end: 20090222
  2. XANAX [Concomitant]
  3. ESTRADIOL [Concomitant]
  4. LEVOTHROID [Concomitant]
  5. CYANOCOBALAMIN [Concomitant]
  6. OMEPRAZOLE [Concomitant]
  7. ALLOPURINOL [Concomitant]
  8. RISPERDAL [Concomitant]
  9. ACYCLOVIR [Concomitant]
  10. LACTULOSE [Concomitant]

REACTIONS (1)
  - REFUSAL OF TREATMENT BY PATIENT [None]
